FAERS Safety Report 21387951 (Version 4)
Quarter: 2022Q4

REPORT INFORMATION
  Report Type: Spontaneous
  Country: US (occurrence: US)
  Receive Date: 20220928
  Receipt Date: 20221014
  Transmission Date: 20230113
  Serious: No
  Sender: FDA-Public Use
  Company Number: US-NOVARTISTESTPH-NVSC2022US219248

PATIENT
  Sex: Female

DRUGS (1)
  1. VIVELLE-DOT [Suspect]
     Active Substance: ESTRADIOL
     Indication: Product used for unknown indication
     Dosage: UNK
     Route: 065
     Dates: start: 1991

REACTIONS (6)
  - Illness [Unknown]
  - Tremor [Unknown]
  - Blood pressure abnormal [Unknown]
  - Dizziness [Unknown]
  - Insomnia [Unknown]
  - Product availability issue [Unknown]
